FAERS Safety Report 10456406 (Version 1)
Quarter: 2014Q3

REPORT INFORMATION
  Report Type: Spontaneous
  Country: IT (occurrence: None)
  Receive Date: 20140828
  Receipt Date: 20140828
  Transmission Date: 20150326
  Serious: Yes (Hospitalization)
  Sender: FDA-Public Use
  Company Number: 14IT009536

PATIENT
  Age: 40 Year
  Sex: Male

DRUGS (6)
  1. PAROXETINE (PAROXETINE) [Suspect]
     Active Substance: PAROXETINE HYDROCHLORIDE
     Indication: INTENTIONAL SELF-INJURY
     Dosage: 2 DF (20 MG TABLETS), SINGLE (TOTAL), ORAL
     Route: 048
     Dates: start: 20140426, end: 20140426
  2. GABAPENTIN (GABAPENTIN) [Concomitant]
     Active Substance: GABAPENTIN
  3. DELORAZEPAM (DELORAZEPAM) [Concomitant]
     Active Substance: DELORAZEPAM
  4. ZOLPIDEM (ZOLPIDEM) [Concomitant]
     Active Substance: ZOLPIDEM TARTRATE
  5. INDOXEN (INDOMETACIN) [Concomitant]
  6. ETHANOL (ETHANOL) [Concomitant]
     Active Substance: ALCOHOL

REACTIONS (2)
  - Bradykinesia [None]
  - Drug abuse [None]

NARRATIVE: CASE EVENT DATE: 20140427
